FAERS Safety Report 7290292-6 (Version None)
Quarter: 2011Q1

REPORT INFORMATION
  Report Type: 
  Country: None (occurrence: None)
  Receive Date: 20110208
  Receipt Date: 20110208
  Transmission Date: 20110831
  Serious: Yes (Other)
  Sender: FDA-Public Use
  Company Number: None

PATIENT
  Age: 51 Year
  Sex: Female
  Weight: 49.4421 kg

DRUGS (1)
  1. ESTRADIOL [Suspect]
     Dosage: 1 PATCH WEEKLY
     Dates: start: 20101027, end: 20110202

REACTIONS (2)
  - RASH [None]
  - PRODUCT ADHESION ISSUE [None]
